FAERS Safety Report 5383527-8 (Version None)
Quarter: 2007Q3

REPORT INFORMATION
  Report Type: 
  Country: None (occurrence: None)
  Receive Date: 20070710
  Receipt Date: 20070628
  Transmission Date: 20080115
  Serious: Yes (Other)
  Sender: FDA-Public Use
  Company Number: SE-GENENTECH-243730

PATIENT
  Age: 60 Year
  Sex: Female

DRUGS (1)
  1. RAPTIVA [Suspect]
     Indication: PUSTULAR PSORIASIS
     Route: 065
     Dates: start: 20050401, end: 20070611

REACTIONS (2)
  - LEUKOPENIA [None]
  - NEUTROPENIA [None]
